FAERS Safety Report 8117609-4 (Version None)
Quarter: 2012Q1

REPORT INFORMATION
  Report Type: 
  Country: None (occurrence: None)
  Receive Date: 20120207
  Receipt Date: 20120130
  Transmission Date: 20120608
  Serious: No
  Sender: FDA-Public Use
  Company Number: US-BIOGENIDEC-2012BI003571

PATIENT
  Age: 50 Year
  Sex: Male

DRUGS (1)
  1. AVONEX [Suspect]
     Indication: MULTIPLE SCLEROSIS
     Route: 030
     Dates: start: 20120109

REACTIONS (6)
  - EAR HAEMORRHAGE [None]
  - DIZZINESS [None]
  - URINARY INCONTINENCE [None]
  - HAEMATOCHEZIA [None]
  - CONSTIPATION [None]
  - ANXIETY [None]
